FAERS Safety Report 6183364-0 (Version None)
Quarter: 2009Q2

REPORT INFORMATION
  Report Type: 
  Country: None (occurrence: None)
  Receive Date: 20090506
  Receipt Date: 20090429
  Transmission Date: 20091009
  Serious: Yes (Death)
  Sender: FDA-Public Use
  Company Number: 2009US000771

PATIENT
  Age: 36 Year
  Sex: Male

DRUGS (15)
  1. AMEVIVE [Suspect]
     Indication: PSORIASIS
     Dosage: 15 MG, WEEKLY; INTRAMUSCULAR
     Route: 030
     Dates: start: 20090119
  2. SENOKOT [Concomitant]
  3. COLACE (DOCUSATE SODIUM) [Concomitant]
  4. SINEMET (CARBIDOPA) [Concomitant]
  5. VITAMIN B-12 [Concomitant]
  6. LASIX [Concomitant]
  7. ZOCOR [Concomitant]
  8. AVAPRO [Concomitant]
  9. ASPIRIN [Concomitant]
  10. DIAMICRON (GLICLAZIDE) [Concomitant]
  11. GLUCOPHAGE [Concomitant]
  12. OXYGEN (OXYGEN) [Concomitant]
  13. SYMBICORT [Concomitant]
  14. SPIRIVA [Concomitant]
  15. VENTOLIN [Concomitant]

REACTIONS (4)
  - CARDIAC ARREST [None]
  - CD4 LYMPHOCYTES DECREASED [None]
  - INFLUENZA [None]
  - RESPIRATORY FAILURE [None]
